FAERS Safety Report 16788844 (Version 2)
Quarter: 2019Q3

REPORT INFORMATION
  Report Type: Report from Study
  Country: JP (occurrence: JP)
  Receive Date: 20190910
  Receipt Date: 20190919
  Transmission Date: 20191005
  Serious: Yes (Death, Hospitalization, Other)
  Sender: FDA-Public Use
  Company Number: JP-ALEXION-A201913250

PATIENT

DRUGS (6)
  1. EUGLUCON [Concomitant]
     Active Substance: GLYBURIDE
     Indication: PRODUCT USED FOR UNKNOWN INDICATION
     Dosage: 1.25 MG, DAILY
     Route: 065
     Dates: start: 20091016, end: 20190410
  2. SEIBULE [Concomitant]
     Active Substance: MIGLITOL
     Indication: PRODUCT USED FOR UNKNOWN INDICATION
     Dosage: 225 MG, DAILY
     Route: 065
     Dates: start: 20131128, end: 20190409
  3. SOLIRIS [Suspect]
     Active Substance: ECULIZUMAB
     Dosage: 900 MG, Q2W
     Route: 042
     Dates: start: 20130124, end: 20190613
  4. PREDONINE [Concomitant]
     Active Substance: PREDNISOLONE
     Dosage: 5 MG, DAILY
     Route: 065
     Dates: start: 20190531, end: 20190606
  5. SOLIRIS [Suspect]
     Active Substance: ECULIZUMAB
     Indication: PAROXYSMAL NOCTURNAL HAEMOGLOBINURIA
     Dosage: 600 MG, QW
     Route: 042
     Dates: start: 20121228, end: 20130117
  6. PREDONINE [Concomitant]
     Active Substance: PREDNISOLONE
     Indication: PAROXYSMAL NOCTURNAL HAEMOGLOBINURIA
     Dosage: 10 MG, DAILY
     Route: 065
     Dates: start: 20170512, end: 20190530

REACTIONS (11)
  - Transfusion [Unknown]
  - Hypoalbuminaemia [Fatal]
  - Pleural effusion [Fatal]
  - Lumbar vertebral fracture [Unknown]
  - Pneumonia aspiration [Fatal]
  - Malnutrition [Fatal]
  - Delirium [Not Recovered/Not Resolved]
  - Fall [Recovering/Resolving]
  - Cognitive disorder [Unknown]
  - Haemorrhage subcutaneous [Unknown]
  - Altered state of consciousness [Unknown]

NARRATIVE: CASE EVENT DATE: 201904
